FAERS Safety Report 12630743 (Version 2)
Quarter: 2017Q1

REPORT INFORMATION
  Report Type: Spontaneous
  Country: IT (occurrence: IT)
  Receive Date: 20160808
  Receipt Date: 20170303
  Transmission Date: 20170428
  Serious: Yes (Other)
  Sender: FDA-Public Use
  Company Number: IT-JNJFOC-20160802954

PATIENT
  Age: 27 Year
  Sex: Female

DRUGS (1)
  1. PALIPERIDONE. [Suspect]
     Active Substance: PALIPERIDONE
     Indication: PSYCHOTIC DISORDER
     Route: 048
     Dates: start: 20160525, end: 20160601

REACTIONS (6)
  - Dizziness [Recovering/Resolving]
  - Tachycardia [Recovering/Resolving]
  - Palpitations [Unknown]
  - Presyncope [Unknown]
  - Muscle rigidity [Recovering/Resolving]
  - Drug intolerance [Unknown]

NARRATIVE: CASE EVENT DATE: 20160601
